FAERS Safety Report 12564679 (Version 1)
Quarter: 2016Q3

REPORT INFORMATION
  Report Type: Spontaneous
  Country: US (occurrence: None)
  Receive Date: 20160715
  Receipt Date: 20160715
  Transmission Date: 20161109
  Serious: Yes (Life-Threatening, Hospitalization, Disabling, Congenital Anomaly)
  Sender: FDA-Public Use
  Company Number: None

PATIENT
  Age: 2 Year
  Sex: Male
  Weight: 13.61 kg

DRUGS (10)
  1. OXYGEN BREATHER DEVICE [Concomitant]
  2. IBUPROFEN. [Concomitant]
     Active Substance: IBUPROFEN
  3. MONITOR FOR HEART RESPIRATORY AND BREATHING [Concomitant]
  4. RANITINE [Concomitant]
  5. GLOUCOSE METER [Concomitant]
  6. AMOXICILLIN 400 MG HAGGEN PHARMACY #3460 [Suspect]
     Active Substance: AMOXICILLIN
     Indication: EAR INFECTION
     Dosage: 6.5 TEASPOON(S) TWICE A DAY TAKEN BY MOUTH
     Route: 048
  7. VITAMION D [Concomitant]
  8. BENADRYL [Concomitant]
     Active Substance: DIPHENHYDRAMINE HYDROCHLORIDE
  9. NG TUBE [Concomitant]
  10. MAALOX ANTACID [Concomitant]
     Active Substance: ALUMINUM HYDROXIDE\DIMETHICONE\MAGNESIUM HYDROXIDE

REACTIONS (3)
  - Suspected transmission of an infectious agent via product [None]
  - Drug dispensing error [None]
  - Herpes virus infection [None]

NARRATIVE: CASE EVENT DATE: 20160707
